FAERS Safety Report 11776593 (Version 1)
Quarter: 2015Q4

REPORT INFORMATION
  Report Type: Spontaneous
  Country: US (occurrence: None)
  Receive Date: 20151123
  Receipt Date: 20151123
  Transmission Date: 20160304
  Serious: Yes (Hospitalization)
  Sender: FDA-Public Use
  Company Number: None

PATIENT
  Age: 63 Year
  Sex: Female

DRUGS (3)
  1. BENDAMUSTINE [Concomitant]
     Active Substance: BENDAMUSTINE
  2. IXAZOMIB [Suspect]
     Active Substance: IXAZOMIB
     Indication: PLASMA CELL MYELOMA RECURRENT
     Route: 048
     Dates: start: 20151022
  3. DEXAMETHASONE. [Concomitant]
     Active Substance: DEXAMETHASONE

REACTIONS (3)
  - Anaemia [None]
  - Troponin increased [None]
  - Hypercalcaemia [None]

NARRATIVE: CASE EVENT DATE: 20151117
